FAERS Safety Report 7047002-7 (Version None)
Quarter: 2010Q4

REPORT INFORMATION
  Report Type: 
  Country: None (occurrence: None)
  Receive Date: 20101015
  Receipt Date: 20101005
  Transmission Date: 20110411
  Serious: Yes (Hospitalization)
  Sender: FDA-Public Use
  Company Number: CA-JNJFOC-20101001870

PATIENT
  Sex: Male
  Weight: 80.4 kg

DRUGS (3)
  1. REMICADE [Suspect]
     Indication: PSORIATIC ARTHROPATHY
     Dosage: TO THE ^PRESENT^; 25 TOTAL INFUSIONS
     Route: 042
  2. CORTISONE [Concomitant]
     Route: 061
  3. NASONEX [Concomitant]

REACTIONS (2)
  - CHEST PAIN [None]
  - CONJUNCTIVITIS INFECTIVE [None]
